FAERS Safety Report 8223400-0 (Version None)
Quarter: 2012Q1

REPORT INFORMATION
  Report Type: 
  Country: None (occurrence: None)
  Receive Date: 20120321
  Receipt Date: 20120309
  Transmission Date: 20120608
  Serious: Yes (Other)
  Sender: FDA-Public Use
  Company Number: US-ELI_LILLY_AND_COMPANY-US201201008105

PATIENT
  Age: 84 Year
  Sex: Female
  Weight: 65.306 kg

DRUGS (5)
  1. CALCIUM CARBONATE [Concomitant]
  2. CYMBALTA [Concomitant]
  3. CELEBREX [Concomitant]
  4. ASPIRIN [Concomitant]
  5. FORTEO [Suspect]
     Indication: OSTEOPOROSIS
     Dosage: 20 UG, QD
     Route: 058
     Dates: start: 20110511

REACTIONS (1)
  - NEOPLASM MALIGNANT [None]
